FAERS Safety Report 8349403-3 (Version None)
Quarter: 2012Q2

REPORT INFORMATION
  Report Type: 
  Country: None (occurrence: None)
  Receive Date: 20120510
  Receipt Date: 20120430
  Transmission Date: 20120825
  Serious: Yes (Other)
  Sender: FDA-Public Use
  Company Number: US-SANOFI-AVENTIS-2012SA030206

PATIENT
  Sex: Male

DRUGS (1)
  1. ALLEGRA [Suspect]

REACTIONS (4)
  - DISABILITY [None]
  - GASTROINTESTINAL DISORDER [None]
  - BACK PAIN [None]
  - ABNORMAL BEHAVIOUR [None]
